FAERS Safety Report 9997630 (Version 3)
Quarter: 2014Q3

REPORT INFORMATION
  Report Type: Report from Study
  Country: NL (occurrence: NL)
  Receive Date: 20140311
  Receipt Date: 20140924
  Transmission Date: 20150326
  Serious: Yes (Hospitalization)
  Sender: FDA-Public Use
  Company Number: PHHY2014NL029116

PATIENT
  Sex: Male
  Weight: 75 kg

DRUGS (10)
  1. SANDOSTATIN LAR DEPOT [Suspect]
     Active Substance: OCTREOTIDE ACETATE
     Indication: ACROMEGALY
     Dosage: 30 MG, ONCE EVERY 3 WEEKS
     Route: 058
     Dates: start: 201305
  2. SANDOSTATIN LAR DEPOT [Suspect]
     Active Substance: OCTREOTIDE ACETATE
     Dosage: 30 MG, ONCE EVERY 3 WEEKS
     Route: 030
     Dates: start: 20140212
  3. DIAZEPAM. [Concomitant]
     Active Substance: DIAZEPAM
     Dosage: 5 MG, QD
  4. SANDOSTATIN LAR DEPOT [Suspect]
     Active Substance: OCTREOTIDE ACETATE
     Dosage: 30 MG, ONCE EVERY 3 WEEKS
     Route: 030
     Dates: start: 20140306
  5. ASCAL [Concomitant]
     Active Substance: CARBASALATE
     Dosage: 100 MG, QD
  6. LEVOTHYROXINE [Concomitant]
     Active Substance: LEVOTHYROXINE
     Dosage: 150 UG, QD
  7. DIPYRIDAMOL [Concomitant]
     Dosage: UNK UKN, UNK
  8. SANDOSTATIN LAR DEPOT [Suspect]
     Active Substance: OCTREOTIDE ACETATE
     Dosage: 30 MG, ONCE EVERY 3 WEEKS
     Route: 030
     Dates: start: 20140102
  9. ATORVASTATIN [Concomitant]
     Active Substance: ATORVASTATIN
     Dosage: 40 MG, ONCE DAILY
  10. CABERGOLINE. [Concomitant]
     Active Substance: CABERGOLINE
     Dosage: 0.5 MG, QD

REACTIONS (1)
  - Psychotic disorder [Unknown]

NARRATIVE: CASE EVENT DATE: 20140224
